FAERS Safety Report 8541028-X (Version None)
Quarter: 2012Q3

REPORT INFORMATION
  Report Type: 
  Country: None (occurrence: None)
  Receive Date: 20120716
  Receipt Date: 20120705
  Transmission Date: 20120928
  Serious: Yes (Other)
  Sender: FDA-Public Use
  Company Number: ACO_29922_2012

PATIENT
  Age: 56 Year
  Sex: Male
  Weight: 64.4 kg

DRUGS (3)
  1. AMPYRA [Suspect]
     Indication: MULTIPLE SCLEROSIS
     Dosage: 10 MG, BID, ORAL
     Route: 048
     Dates: start: 20120224
  2. AMPYRA [Suspect]
     Indication: GAIT DISTURBANCE
     Dosage: 10 MG, BID, ORAL
     Route: 048
     Dates: start: 20120224
  3. WELLBUTRIN [Concomitant]

REACTIONS (6)
  - PULMONARY THROMBOSIS [None]
  - THROMBOSIS [None]
  - INTERNATIONAL NORMALISED RATIO DECREASED [None]
  - THERAPEUTIC RESPONSE UNEXPECTED [None]
  - ANTIPHOSPHOLIPID SYNDROME [None]
  - INTERNATIONAL NORMALISED RATIO INCREASED [None]
